FAERS Safety Report 4617226-4 (Version None)
Quarter: 2005Q1

REPORT INFORMATION
  Report Type: 
  Country: None (occurrence: None)
  Receive Date: 20050323
  Receipt Date: 20050316
  Transmission Date: 20050727
  Serious: Yes (Other)
  Sender: FDA-Public Use
  Company Number: PHBS2005ES03945

PATIENT
  Age: 54 Year
  Sex: Male

DRUGS (2)
  1. CYCLOSPORINE [Suspect]
     Indication: LIVER TRANSPLANT
     Dosage: 50 MG, BID
     Route: 065
  2. PREDNISONE [Concomitant]
     Indication: LIVER TRANSPLANT
     Dosage: 20 MG/D
     Route: 065

REACTIONS (4)
  - CEREBELLAR SYNDROME [None]
  - COORDINATION ABNORMAL [None]
  - STATUS EPILEPTICUS [None]
  - TREMOR [None]
